FAERS Safety Report 6493692-7 (Version None)
Quarter: 2009Q4

REPORT INFORMATION
  Report Type: 
  Country: None (occurrence: None)
  Receive Date: 20091214
  Receipt Date: 20091201
  Transmission Date: 20100525
  Serious: Yes (Hospitalization)
  Sender: FDA-Public Use
  Company Number: B0614562A

PATIENT
  Age: 71 Year
  Sex: Female

DRUGS (8)
  1. DIGOXIN [Suspect]
     Indication: DRUG USE FOR UNKNOWN INDICATION
     Dosage: 125UG PER DAY
     Route: 065
  2. OMEPRAZOLE [Concomitant]
  3. CALCIUM CARBONATE [Concomitant]
  4. CARBIMAZOLE [Concomitant]
  5. WARFARIN SODIUM [Concomitant]
  6. VITAMIN D [Concomitant]
  7. ASCORBIC ACID [Concomitant]
  8. HAEMODIALYSIS [Concomitant]

REACTIONS (5)
  - ARTERIOVENOUS FISTULA THROMBOSIS [None]
  - ATRIOVENTRICULAR BLOCK [None]
  - BRADYCARDIA [None]
  - BUNDLE BRANCH BLOCK LEFT [None]
  - THERAPEUTIC AGENT TOXICITY [None]
